FAERS Safety Report 13915910 (Version 1)
Quarter: 2017Q3

REPORT INFORMATION
  Report Type: Spontaneous
  Country: US (occurrence: US)
  Receive Date: 20170829
  Receipt Date: 20170829
  Transmission Date: 20171127
  Serious: Yes (Other)
  Sender: FDA-Public Use
  Company Number: US-KADMON PHARMACEUTICALS, LLC-KAD201708-000944

PATIENT
  Age: 59 Year
  Sex: Female

DRUGS (4)
  1. EPOETIN ALFA [Concomitant]
     Active Substance: ERYTHROPOIETIN
  2. BOCEPREVIR [Suspect]
     Active Substance: BOCEPREVIR
     Dates: start: 20130415
  3. PEGINTERFERON ALFA-2A. [Suspect]
     Active Substance: PEGINTERFERON ALFA-2A
     Indication: CHRONIC HEPATITIS C
     Route: 058
     Dates: start: 20130311
  4. RIBASPHERE [Suspect]
     Active Substance: RIBAVIRIN
     Indication: CHRONIC HEPATITIS C
     Route: 048
     Dates: start: 20130311

REACTIONS (10)
  - Fatigue [Unknown]
  - Vomiting [Unknown]
  - Loss of consciousness [Unknown]
  - Asthenia [Unknown]
  - Influenza like illness [Unknown]
  - Dyspnoea [Unknown]
  - Anaemia [Unknown]
  - Dizziness [Unknown]
  - Amylase abnormal [Unknown]
  - Nausea [Unknown]
